FAERS Safety Report 15980512 (Version 1)
Quarter: 2019Q1

REPORT INFORMATION
  Report Type: Spontaneous
  Country: US (occurrence: US)
  Receive Date: 20190124
  Receipt Date: 20190124
  Transmission Date: 20190418
  Serious: Yes (Hospitalization)
  Sender: FDA-Public Use
  Company Number: None

PATIENT
  Age: 43 Year
  Sex: Male

DRUGS (11)
  1. HUMIRA [Suspect]
     Active Substance: ADALIMUMAB
     Indication: CROHN^S DISEASE
     Dosage: ?          OTHER FREQUENCY:EVERY 2 WEEKS;?
     Route: 058
     Dates: start: 20180809
  2. OMEPRAZOLE CAP [Concomitant]
     Active Substance: OMEPRAZOLE SODIUM
  3. RANITIDINE TAB [Concomitant]
  4. ADVAIR DISKU AER 500/50 [Concomitant]
  5. ASMANEX 30 AER 110MCG [Concomitant]
  6. METRONIDAZOL TAB 500MG [Concomitant]
  7. FLUTICASONE SPR 50MCG [Concomitant]
     Active Substance: FLUTICASONE
  8. MONTELUKAST [Concomitant]
     Active Substance: MONTELUKAST SODIUM
  9. PREDNISONE TAB 20MG [Concomitant]
     Active Substance: PREDNISONE
  10. PRO AIR HFA ABR [Concomitant]
  11. DICYCLOMINE TAB 20MG [Concomitant]

REACTIONS (1)
  - Condition aggravated [None]
